FAERS Safety Report 13625563 (Version 1)
Quarter: 2017Q2

REPORT INFORMATION
  Report Type: Spontaneous
  Country: US (occurrence: US)
  Receive Date: 20170607
  Receipt Date: 20170607
  Transmission Date: 20170830
  Serious: Yes (Hospitalization)
  Sender: FDA-Public Use
  Company Number: None

PATIENT
  Age: 68 Year
  Sex: Male

DRUGS (1)
  1. IBUPROFEN. [Suspect]
     Active Substance: IBUPROFEN
     Indication: GOUT
     Route: 048
     Dates: start: 20160926, end: 20170422

REACTIONS (7)
  - Chills [None]
  - Hypotension [None]
  - Abdominal pain [None]
  - Tachycardia [None]
  - Anaemia [None]
  - Lower gastrointestinal haemorrhage [None]
  - Rectal haemorrhage [None]

NARRATIVE: CASE EVENT DATE: 20170418
